FAERS Safety Report 9163689 (Version 1)
Quarter: 2013Q1

REPORT INFORMATION
  Report Type: Spontaneous
  Country: US (occurrence: US)
  Receive Date: 20130314
  Receipt Date: 20130314
  Transmission Date: 20140127
  Serious: No
  Sender: FDA-Public Use
  Company Number: US-ASTRAZENECA-2013SE09061

PATIENT
  Age: 67 Year
  Sex: Female
  Weight: 108.9 kg

DRUGS (4)
  1. NEXIUM [Suspect]
     Indication: GASTROOESOPHAGEAL REFLUX DISEASE
     Route: 048
     Dates: start: 2007
  2. NEXIUM [Suspect]
     Indication: GASTROOESOPHAGEAL REFLUX DISEASE
     Route: 048
     Dates: end: 201210
  3. NEXIUM [Suspect]
     Indication: GASTROOESOPHAGEAL REFLUX DISEASE
     Route: 048
     Dates: start: 201211
  4. ALLOPURINOL [Concomitant]
     Indication: NEPHROLITHIASIS

REACTIONS (3)
  - Gastrooesophageal reflux disease [Unknown]
  - Drug prescribing error [Unknown]
  - Intentional drug misuse [Unknown]
